FAERS Safety Report 8976264 (Version 2)
Quarter: 2013Q1

REPORT INFORMATION
  Report Type: Report from Study
  Country: JP (occurrence: JP)
  Receive Date: 20121220
  Receipt Date: 20130220
  Transmission Date: 20140127
  Serious: Yes (Hospitalization)
  Sender: FDA-Public Use
  Company Number: JP-ABBOTT-12P-087-1024254-00

PATIENT
  Age: 25 Year
  Sex: Female

DRUGS (5)
  1. KALETRA [Suspect]
     Indication: HIV INFECTION
     Route: 048
     Dates: start: 20110808, end: 20120103
  2. ZIDOVUDINE W/LAMIVUDINE [Concomitant]
     Indication: HIV INFECTION
     Dosage: 2 DOSAGE FORMS DAILY
     Route: 048
     Dates: start: 20110808, end: 20120103
  3. EMTRICITABINE W/TENOFOVIR DISOPROXIL FUMARATE [Concomitant]
     Indication: HIV INFECTION
     Dosage: 1 DOSAGE FORM DAILY
     Route: 048
     Dates: start: 20120104
  4. RALTEGRAVIR POTASSIUM [Concomitant]
     Indication: HIV INFECTION
     Route: 048
     Dates: start: 20120104
  5. CEFCAPENE PIVOXIL HYDROCHLORIDE [Concomitant]
     Indication: INFECTION PROPHYLAXIS
     Dates: start: 20111230, end: 20120103

REACTIONS (1)
  - Threatened labour [Recovered/Resolved]
